FAERS Safety Report 6805078-3 (Version None)
Quarter: 2010Q2

REPORT INFORMATION
  Report Type: 
  Country: None (occurrence: None)
  Receive Date: 20100628
  Receipt Date: 20070906
  Transmission Date: 20101027
  Serious: No
  Sender: FDA-Public Use
  Company Number: US-PFIZER INC-2007075150

PATIENT
  Sex: Female
  Weight: 57.3 kg

DRUGS (3)
  1. XALATAN [Suspect]
     Indication: INTRAOCULAR PRESSURE INCREASED
     Dates: start: 20070101
  2. LITHIUM [Concomitant]
  3. SYNTHROID [Concomitant]

REACTIONS (1)
  - RENAL IMPAIRMENT [None]
